FAERS Safety Report 20924058 (Version 2)
Quarter: 2022Q3

REPORT INFORMATION
  Report Type: Spontaneous
  Country: US (occurrence: US)
  Receive Date: 20220607
  Receipt Date: 20220819
  Transmission Date: 20221027
  Serious: No
  Sender: FDA-Public Use
  Company Number: US-009507513-2205USA004488

PATIENT
  Sex: Male
  Weight: 57.143 kg

DRUGS (1)
  1. KEYTRUDA [Suspect]
     Active Substance: PEMBROLIZUMAB
     Indication: Metastatic malignant melanoma

REACTIONS (5)
  - Skin discolouration [Unknown]
  - Adverse event [Unknown]
  - Illness [Unknown]
  - Immune-mediated adverse reaction [Unknown]
  - Inability to afford medication [Unknown]
